FAERS Safety Report 9972030 (Version 1)
Quarter: 2014Q1

REPORT INFORMATION
  Report Type: Spontaneous
  Country: US (occurrence: None)
  Receive Date: 20140305
  Receipt Date: 20140305
  Transmission Date: 20141002
  Serious: Yes (Other)
  Sender: FDA-Public Use
  Company Number: None

PATIENT
  Age: 61 Year
  Sex: Male
  Weight: 106.6 kg

DRUGS (1)
  1. LISINOPRIL 10 MG WALGREENS [Suspect]
     Indication: HYPERTENSION
     Route: 048
     Dates: start: 20140203, end: 20140301

REACTIONS (4)
  - Rash [None]
  - Swelling face [None]
  - Lip swelling [None]
  - Hypersensitivity [None]
